FAERS Safety Report 7078404-0 (Version None)
Quarter: 2010Q4

REPORT INFORMATION
  Report Type: 
  Country: None (occurrence: None)
  Receive Date: 20101102
  Receipt Date: 20101027
  Transmission Date: 20110411
  Serious: Yes (Other)
  Sender: FDA-Public Use
  Company Number: JP-BAYER-201015407BYL

PATIENT
  Age: 76 Year

DRUGS (2)
  1. NEXAVAR [Suspect]
     Indication: RENAL CELL CARCINOMA
     Dosage: UNIT DOSE: 200 MG
     Route: 048
  2. ADRENAL HORMONE PREPARATIONS [Suspect]
     Indication: BRAIN OEDEMA
     Route: 065

REACTIONS (1)
  - DUODENAL ULCER [None]
